FAERS Safety Report 5553358-4 (Version None)
Quarter: 2007Q4

REPORT INFORMATION
  Report Type: 
  Country: None (occurrence: None)
  Receive Date: 20071212
  Receipt Date: 20071212
  Transmission Date: 20080405
  Serious: Yes (Other)
  Sender: FDA-Public Use
  Company Number: None

PATIENT

DRUGS (2)
  1. ACIPHEX [Suspect]
     Indication: HAEMORRHAGE
  2. PROTONIX [Suspect]
     Indication: GASTROOESOPHAGEAL REFLUX DISEASE

REACTIONS (1)
  - LIBIDO DECREASED [None]
